FAERS Safety Report 13464604 (Version 1)
Quarter: 2017Q2

REPORT INFORMATION
  Report Type: Spontaneous
  Country: US (occurrence: US)
  Receive Date: 20170420
  Receipt Date: 20170420
  Transmission Date: 20170830
  Serious: Yes (Hospitalization, Other)
  Sender: FDA-Public Use
  Company Number: US-ROCHE-678062

PATIENT
  Age: 16 Year
  Sex: Male
  Weight: 61.2 kg

DRUGS (2)
  1. ACCUTANE [Suspect]
     Active Substance: ISOTRETINOIN
     Indication: ACNE
     Route: 065
  2. ACCUTANE [Suspect]
     Active Substance: ISOTRETINOIN
     Route: 065
     Dates: start: 19920116, end: 19920510

REACTIONS (6)
  - Large intestinal ulcer [Not Recovered/Not Resolved]
  - Blood cholesterol increased [Unknown]
  - Stomatitis [Recovered/Resolved]
  - Gastrointestinal injury [Unknown]
  - Inflammatory bowel disease [Unknown]
  - Blood alkaline phosphatase increased [Unknown]

NARRATIVE: CASE EVENT DATE: 19911214
